FAERS Safety Report 6998342-9 (Version None)
Quarter: 2010Q3

REPORT INFORMATION
  Report Type: 
  Country: None (occurrence: None)
  Receive Date: 20100920
  Receipt Date: 20100907
  Transmission Date: 20110219
  Serious: Yes (Death, Hospitalization)
  Sender: FDA-Public Use
  Company Number: CA-JNJFOC-20100702957

PATIENT
  Sex: Female
  Weight: 50 kg

DRUGS (16)
  1. REMICADE [Suspect]
     Indication: RHEUMATOID ARTHRITIS
     Route: 042
  2. REMICADE [Suspect]
     Route: 042
  3. CELEXA [Concomitant]
  4. DIGOXIN [Concomitant]
  5. FOLIC ACID [Concomitant]
  6. LEVOTHYROXINE SODIUM [Concomitant]
  7. LISINOPRIL [Concomitant]
  8. HCT [Concomitant]
  9. RABEPRAZOLE SODIUM [Concomitant]
  10. SENOKOT [Concomitant]
  11. VENTOLIN [Concomitant]
  12. ADVAIR DISKUS 100/50 [Concomitant]
  13. SPIRIVA [Concomitant]
  14. HYCODAN [Concomitant]
  15. DILAUDID [Concomitant]
  16. TYLENOL W/ CODEINE NO. 2 [Concomitant]

REACTIONS (1)
  - LUNG NEOPLASM MALIGNANT [None]
